FAERS Safety Report 7260637-1 (Version None)
Quarter: 2011Q1

REPORT INFORMATION
  Report Type: 
  Country: None (occurrence: None)
  Receive Date: 20110130
  Receipt Date: 20101119
  Transmission Date: 20110831
  Serious: Yes (Other)
  Sender: FDA-Public Use
  Company Number: US-ABBOTT-10P-163-0687022-00

PATIENT
  Age: 41 Year
  Sex: Male

DRUGS (6)
  1. VICODIN [Concomitant]
     Indication: PAIN
  2. HUMIRA [Suspect]
     Indication: PSORIATIC ARTHROPATHY
     Dates: start: 20100501
  3. TORADOL [Concomitant]
     Indication: PSORIATIC ARTHROPATHY
  4. LISINOPRIL [Concomitant]
     Indication: HYPERTENSION
  5. CYCLOBENZAPRINE [Concomitant]
     Indication: MUSCLE RELAXANT THERAPY
  6. DESIPRAMINE [Concomitant]
     Indication: FIBROMYALGIA
     Dosage: DAILY

REACTIONS (5)
  - INJECTION SITE HAEMATOMA [None]
  - ABDOMINAL PAIN [None]
  - WRONG TECHNIQUE IN DRUG USAGE PROCESS [None]
  - INJECTION SITE PAIN [None]
  - INCORRECT DOSE ADMINISTERED [None]
